FAERS Safety Report 5044597-X (Version None)
Quarter: 2006Q2

REPORT INFORMATION
  Report Type: 
  Country: None (occurrence: None)
  Receive Date: 20060629
  Receipt Date: 20060608
  Transmission Date: 20061013
  Serious: Yes (Hospitalization, Other)
  Sender: FDA-Public Use
  Company Number: 601#1#2006-00001

PATIENT
  Age: 48 Year
  Sex: Male

DRUGS (2)
  1. VASAPROSTAN (ALPROSTADIL (PAOD)) [Suspect]
     Indication: AORTIC THROMBOSIS
     Dosage: 60 MCG (20 MCG 3 IN 3 HOUR(S)); INTRAVENOUS (NOT OTHERWISE SPECIFIED)
     Route: 042
     Dates: start: 20060410, end: 20060412
  2. PENTOXIFYLLINE [Concomitant]

REACTIONS (5)
  - ABSCESS [None]
  - BODY TEMPERATURE INCREASED [None]
  - LUNG INFILTRATION [None]
  - PHARMACEUTICAL PRODUCT COMPLAINT [None]
  - RENAL FAILURE ACUTE [None]
